FAERS Safety Report 8853215 (Version 3)
Quarter: 2014Q2

REPORT INFORMATION
  Report Type: Spontaneous
  Country: US (occurrence: US)
  Receive Date: 20121022
  Receipt Date: 20131018
  Transmission Date: 20141212
  Serious: Yes (Disabling, Other)
  Sender: FDA-Public Use
  Company Number: US-PFIZER INC-2012261271

PATIENT
  Age: 50 Year
  Sex: Female
  Weight: 53.97 kg

DRUGS (8)
  1. LYRICA [Suspect]
     Indication: FIBROMYALGIA
     Dosage: 200 MG, 2X/DAY
     Route: 048
  2. PREMPRO [Suspect]
     Indication: MENOPAUSAL SYMPTOMS
     Dosage: 0.45/1.5 MG, 1X/DAY
     Route: 048
  3. CHLORZOXAZONE [Concomitant]
     Dosage: 500 MG, UNK
     Route: 048
  4. CYMBALTA [Concomitant]
     Dosage: 50 MG, 1X/DAY
  5. MORPHINE ER [Concomitant]
     Dosage: 30 MG, UNK
     Route: 048
  6. OMEPRAZOLE [Concomitant]
     Dosage: 20 MG, UNK
     Route: 048
  7. ZOLOFT [Concomitant]
     Dosage: 100 MG, UNK
  8. ZANTAC [Concomitant]
     Dosage: 150 MG, 1X/DAY

REACTIONS (2)
  - Road traffic accident [Unknown]
  - Intervertebral disc protrusion [Unknown]
